FAERS Safety Report 5635883-0 (Version None)
Quarter: 2008Q1

REPORT INFORMATION
  Report Type: 
  Country: None (occurrence: None)
  Receive Date: 20080221
  Receipt Date: 20080207
  Transmission Date: 20080703
  Serious: Yes (Death)
  Sender: FDA-Public Use
  Company Number: 2008US000524

PATIENT
  Age: 50 Year
  Sex: Female

DRUGS (1)
  1. AMBISOME [Suspect]
     Indication: MUCORMYCOSIS
     Dosage: 5 MG/KG, UID/QD; 10 MG/KG, UID/QD; 3 MG, UID/QD

REACTIONS (2)
  - RENAL FAILURE [None]
  - VENOUS THROMBOSIS [None]
